FAERS Safety Report 16772770 (Version 1)
Quarter: 2019Q3

REPORT INFORMATION
  Report Type: Spontaneous
  Country: US (occurrence: US)
  Receive Date: 20190904
  Receipt Date: 20190904
  Transmission Date: 20191005
  Serious: No
  Sender: FDA-Public Use
  Company Number: US-TEVA-2019-US-1101559

PATIENT
  Sex: Male

DRUGS (1)
  1. TESTOSTERONE ACTAVIS [Suspect]
     Active Substance: TESTOSTERONE
     Indication: HYPERGONADISM
     Route: 061
     Dates: start: 20190822

REACTIONS (1)
  - Drug ineffective [Unknown]
